FAERS Safety Report 17959440 (Version 1)
Quarter: 2020Q2

REPORT INFORMATION
  Report Type: Spontaneous
  Country: DE (occurrence: DE)
  Receive Date: 20200629
  Receipt Date: 20200629
  Transmission Date: 20200714
  Serious: Yes (Hospitalization, Other)
  Sender: FDA-Public Use
  Company Number: DE-MYLANLABS-2020M1058597

PATIENT
  Sex: Female

DRUGS (2)
  1. BISOPROLOL [Suspect]
     Active Substance: BISOPROLOL
     Indication: ATRIAL FIBRILLATION
     Dosage: UNK
  2. SOMATULINE AUTOGEL [Interacting]
     Active Substance: LANREOTIDE ACETATE
     Indication: NEUROENDOCRINE TUMOUR
     Dosage: 120 MILLIGRAM, MONTHLY
     Route: 065

REACTIONS (6)
  - Drug interaction [Unknown]
  - Headache [Unknown]
  - Cardiac disorder [Unknown]
  - Atrial fibrillation [Unknown]
  - Blood potassium decreased [Unknown]
  - Heart rate decreased [Unknown]
